FAERS Safety Report 5956791-1 (Version None)
Quarter: 2008Q4

REPORT INFORMATION
  Report Type: 
  Country: None (occurrence: None)
  Receive Date: 20081118
  Receipt Date: 20081105
  Transmission Date: 20090506
  Serious: Yes (Death)
  Sender: FDA-Public Use
  Company Number: NL-AVENTIS-200816959GDDC

PATIENT
  Age: 78 Year
  Sex: Female

DRUGS (19)
  1. RIFADIN [Suspect]
     Indication: ABSCESS
     Route: 048
     Dates: start: 20070214
  2. FLUCLOXACILLINE [Concomitant]
     Dates: start: 20070214
  3. DICLOFENAX [Concomitant]
  4. VALSARTAN [Concomitant]
  5. FERROFUMARATE [Concomitant]
  6. GRANISETRON [Concomitant]
  7. PANTOPRAZOLE SODIUM [Concomitant]
  8. MORPHINE [Concomitant]
  9. AUGMENTIN '125' [Concomitant]
     Dosage: DOSE: UNK
     Route: 042
     Dates: start: 20070209, end: 20070215
  10. COMBIVENT                          /01033501/ [Concomitant]
     Route: 055
     Dates: start: 20070206, end: 20070218
  11. DICLOFENAC SODIUM [Concomitant]
     Route: 048
     Dates: start: 20070202, end: 20070218
  12. RAPTIVA [Concomitant]
     Route: 058
     Dates: start: 20070213, end: 20070215
  13. RAPTIVA [Concomitant]
     Route: 058
     Dates: start: 20070215, end: 20070218
  14. HYDROCORTISONE CREAM [Concomitant]
     Dosage: DOSE: UNK
     Dates: start: 20070206, end: 20070214
  15. PRIMPERAN                          /00041901/ [Concomitant]
     Dates: start: 20070213, end: 20070218
  16. MICONAZOLE OINTMENT [Concomitant]
     Dosage: DOSE: UNK
     Route: 061
     Dates: start: 20070213, end: 20070218
  17. NORFLOXACIN [Concomitant]
     Route: 048
     Dates: start: 20070202, end: 20070208
  18. ACETAMINOPHEN [Concomitant]
     Route: 048
     Dates: start: 20070203, end: 20070208
  19. ACETAMINOPHEN [Concomitant]
     Route: 054
     Dates: start: 20070208, end: 20070218

REACTIONS (2)
  - CONDITION AGGRAVATED [None]
  - RENAL FAILURE [None]
